FAERS Safety Report 5796561-0 (Version None)
Quarter: 2008Q2

REPORT INFORMATION
  Report Type: 
  Country: None (occurrence: None)
  Receive Date: 20080630
  Receipt Date: 20080630
  Transmission Date: 20081010
  Serious: Yes (Other)
  Sender: FDA-Public Use
  Company Number: None

PATIENT
  Age: 81 Year
  Sex: Female
  Weight: 72.5755 kg

DRUGS (1)
  1. ACTONEL [Suspect]
     Indication: OSTEOPOROSIS PROPHYLAXIS
     Dosage: 1 PILL ONCE A MONTH PO
     Route: 048
     Dates: start: 20080622, end: 20080622

REACTIONS (6)
  - DIARRHOEA [None]
  - HEADACHE [None]
  - LACRIMATION INCREASED [None]
  - OCULAR HYPERAEMIA [None]
  - OEDEMA PERIPHERAL [None]
  - RASH ERYTHEMATOUS [None]
